FAERS Safety Report 10156668 (Version 1)
Quarter: 2014Q2

REPORT INFORMATION
  Report Type: Spontaneous
  Country: KR (occurrence: KR)
  Receive Date: 20140507
  Receipt Date: 20140507
  Transmission Date: 20141212
  Serious: Yes (Other)
  Sender: FDA-Public Use
  Company Number: KR-ELI_LILLY_AND_COMPANY-KR201404009807

PATIENT
  Sex: Female

DRUGS (1)
  1. CYMBALTA [Suspect]
     Indication: FIBROMYALGIA
     Dosage: 1 DF, UNKNOWN
     Route: 048
     Dates: start: 201306, end: 20140424

REACTIONS (2)
  - Blister [Not Recovered/Not Resolved]
  - Rash generalised [Not Recovered/Not Resolved]
